FAERS Safety Report 9821496 (Version 1)
Quarter: 2014Q1

REPORT INFORMATION
  Report Type: Spontaneous
  Country: US (occurrence: None)
  Receive Date: 20140115
  Receipt Date: 20140115
  Transmission Date: 20141002
  Serious: Yes (Other)
  Sender: FDA-Public Use
  Company Number: None

PATIENT
  Age: 16 Year
  Sex: Female
  Weight: 73.03 kg

DRUGS (1)
  1. DEXMETHYLPHENIDATE [Suspect]
     Indication: ATTENTION DEFICIT/HYPERACTIVITY DISORDER
     Route: 048
     Dates: start: 20131116, end: 20131216

REACTIONS (5)
  - Product substitution issue [None]
  - Disturbance in attention [None]
  - Irritability [None]
  - Crying [None]
  - Educational problem [None]
